FAERS Safety Report 19963775 (Version 2)
Quarter: 2021Q4

REPORT INFORMATION
  Report Type: Spontaneous
  Country: CA (occurrence: CA)
  Receive Date: 20211018
  Receipt Date: 20211111
  Transmission Date: 20220303
  Serious: Yes (Other)
  Sender: FDA-Public Use
  Company Number: CA-AMERICAN REGENT INC-2021002676

PATIENT
  Age: 73 Year
  Sex: Female

DRUGS (3)
  1. VENOFER [Suspect]
     Active Substance: IRON SUCROSE
     Indication: Product used for unknown indication
     Dosage: 200 MILLIGRAM, SINGLE
     Route: 042
     Dates: start: 20210526, end: 20210526
  2. VENOFER [Suspect]
     Active Substance: IRON SUCROSE
     Dosage: 200 MILLIGRAM, SINGLE
     Route: 042
     Dates: start: 20210519, end: 20210519
  3. SODIUM CHLORIDE [Concomitant]
     Active Substance: SODIUM CHLORIDE
     Indication: Product used for unknown indication
     Dosage: UNK
     Route: 065

REACTIONS (4)
  - Balance disorder [Unknown]
  - Malaise [Unknown]
  - Tachycardia [Unknown]
  - Asthenia [Unknown]

NARRATIVE: CASE EVENT DATE: 20210526
